FAERS Safety Report 13334896 (Version 2)
Quarter: 2017Q1

REPORT INFORMATION
  Report Type: Report from Study
  Country: VN (occurrence: VN)
  Receive Date: 20170314
  Receipt Date: 20170331
  Transmission Date: 20170428
  Serious: Yes (Death)
  Sender: FDA-Public Use
  Company Number: PHHY2017VN038664

PATIENT
  Age: 40 Year
  Sex: Male

DRUGS (2)
  1. GLIVEC [Suspect]
     Active Substance: IMATINIB MESYLATE
     Indication: GASTROINTESTINAL STROMAL TUMOUR
     Dosage: 400 MG, QD
     Route: 065
     Dates: start: 20150323, end: 20161101
  2. GLIVEC [Suspect]
     Active Substance: IMATINIB MESYLATE
     Dosage: 600 MG, QD
     Route: 065
     Dates: start: 20161102, end: 20161130

REACTIONS (6)
  - Anaemia [Fatal]
  - Gastrointestinal stromal tumour [Fatal]
  - Abdominal distension [Fatal]
  - Malignant neoplasm progression [Fatal]
  - Faeces discoloured [Fatal]
  - Abdominal pain [Fatal]

NARRATIVE: CASE EVENT DATE: 20161130
